FAERS Safety Report 16115024 (Version 1)
Quarter: 2019Q1

REPORT INFORMATION
  Report Type: Spontaneous
  Country: FR (occurrence: FR)
  Receive Date: 20190325
  Receipt Date: 20190325
  Transmission Date: 20190418
  Serious: Yes (Death, Hospitalization)
  Sender: FDA-Public Use
  Company Number: FR-SAMSUNG BIOEPIS-SB-2019-06450

PATIENT
  Age: 51 Year
  Sex: Female

DRUGS (1)
  1. INFLIXIMAB [Suspect]
     Active Substance: INFLIXIMAB
     Indication: HERMANSKY-PUDLAK SYNDROME
     Route: 065

REACTIONS (4)
  - Bronchospasm [Unknown]
  - Off label use [Unknown]
  - Respiratory failure [Fatal]
  - Anaphylactic reaction [Unknown]
